FAERS Safety Report 6288450-2 (Version None)
Quarter: 2009Q3

REPORT INFORMATION
  Report Type: 
  Country: None (occurrence: None)
  Receive Date: 20090729
  Receipt Date: 20090723
  Transmission Date: 20100115
  Serious: Yes (Life-Threatening, Hospitalization)
  Sender: FDA-Public Use
  Company Number: B0275871A

PATIENT
  Age: 25 Year
  Sex: Female

DRUGS (2)
  1. LAMICTAL [Suspect]
     Indication: EPILEPSY
     Route: 048
     Dates: start: 20020415, end: 20020429
  2. DEPAKENE [Concomitant]
     Indication: EPILEPSY

REACTIONS (13)
  - CONJUNCTIVITIS [None]
  - COUGH [None]
  - FACE OEDEMA [None]
  - GENERAL PHYSICAL HEALTH DETERIORATION [None]
  - HYPERTHERMIA [None]
  - ILL-DEFINED DISORDER [None]
  - LYMPHADENOPATHY [None]
  - MOUTH ULCERATION [None]
  - RASH MACULO-PAPULAR [None]
  - SKIN EXFOLIATION [None]
  - SKIN LESION [None]
  - STEVENS-JOHNSON SYNDROME [None]
  - TOXIC SKIN ERUPTION [None]
